FAERS Safety Report 4738013-2 (Version None)
Quarter: 2005Q3

REPORT INFORMATION
  Report Type: 
  Country: None (occurrence: None)
  Receive Date: 20050803
  Receipt Date: 20050729
  Transmission Date: 20060218
  Serious: Yes (Hospitalization)
  Sender: FDA-Public Use
  Company Number: 200512277GDS

PATIENT
  Age: 87 Year
  Sex: Male

DRUGS (5)
  1. ASPIRIN [Suspect]
     Dosage: 100 MG, TOTAL DAILY, ORAL
     Route: 048
     Dates: end: 20050609
  2. SINTROM [Suspect]
     Dosage: ORAL
     Route: 048
     Dates: end: 20050609
  3. DILATREND [Concomitant]
  4. TORSEMIDE [Concomitant]
  5. ENATEC [Concomitant]

REACTIONS (10)
  - BALANCE DISORDER [None]
  - CONCUSSION [None]
  - CONTUSION [None]
  - DRUG INTERACTION [None]
  - FALL [None]
  - HEAD INJURY [None]
  - HYPERTENSION [None]
  - LACERATION [None]
  - SUBARACHNOID HAEMORRHAGE [None]
  - VOMITING [None]
